FAERS Safety Report 6984873-4 (Version None)
Quarter: 2010Q3

REPORT INFORMATION
  Report Type: 
  Country: None (occurrence: None)
  Receive Date: 20100913
  Receipt Date: 20100827
  Transmission Date: 20110219
  Serious: Yes (Other)
  Sender: FDA-Public Use
  Company Number: 2010AP001850

PATIENT
  Age: 67 Year
  Sex: Female

DRUGS (5)
  1. ALENDRONATE SODIUM [Suspect]
     Dosage: TAB;PO
     Route: 048
  2. MYCOPHENOLATE MOFETIL [Suspect]
     Dosage: 2500 MG;TAB;QD
     Dates: start: 20080101
  3. GABAPENTIN [Concomitant]
  4. CELLCEPT [Concomitant]
  5. AMITRIPTYLINE HYDROCHLORIDE [Concomitant]

REACTIONS (3)
  - DYSPHAGIA [None]
  - OESOPHAGEAL ULCER [None]
  - STOMATITIS [None]
